FAERS Safety Report 7059776-X (Version None)
Quarter: 2010Q4

REPORT INFORMATION
  Report Type: 
  Country: None (occurrence: None)
  Receive Date: 20101025
  Receipt Date: 20101013
  Transmission Date: 20110411
  Serious: Yes (Death, Hospitalization)
  Sender: FDA-Public Use
  Company Number: US-PFIZER INC-2010030642

PATIENT
  Sex: Female
  Weight: 56.2 kg

DRUGS (15)
  1. SUNITINIB MALATE [Suspect]
     Indication: METASTATIC RENAL CELL CARCINOMA
     Dosage: 37.5 MG, 1X/DAY
     Route: 048
     Dates: start: 20090303, end: 20090504
  2. SUNITINIB MALATE [Interacting]
     Dosage: 37.5 MG, 1X/DAY
     Route: 048
     Dates: start: 20090604, end: 20090915
  3. SUNITINIB MALATE [Interacting]
     Dosage: 37.5 MG, 1X/DAY
     Route: 048
     Dates: start: 20091008, end: 20100218
  4. CIPRO [Interacting]
     Indication: PNEUMONIA
     Dosage: 500 MG, 2X/DAY
     Route: 048
     Dates: start: 20100208, end: 20100218
  5. RANITIDINE [Concomitant]
     Dosage: 150 MG, 1X/DAY
  6. GLIPIZIDE [Concomitant]
     Dosage: 10 MG, 1X/DAY
  7. LISINOPRIL [Concomitant]
     Dosage: 10 MG, 1X/DAY
  8. OXYCONTIN [Concomitant]
     Dosage: 10 MG, 2X/DAY
  9. FERROUS SULFATE [Concomitant]
     Dosage: 325 MG, 1X/DAY
  10. OXYCODONE [Concomitant]
     Dosage: 5 MG, Q6H
  11. DURAGESIC-100 [Concomitant]
     Dosage: 50 UG, Q3D
  12. ADVAIR DISKUS 100/50 [Concomitant]
     Dosage: 250/50 BID
  13. SPIRIVA [Concomitant]
     Dosage: 18 UG, 1X/DAY
  14. LORATADINE [Concomitant]
     Dosage: 10 MG, 1X/DAY
  15. METFORMIN [Concomitant]
     Dosage: 500 MG, 2X/DAY

REACTIONS (4)
  - DISEASE PROGRESSION [None]
  - DRUG INTERACTION [None]
  - RENAL CELL CARCINOMA [None]
  - RENAL FAILURE ACUTE [None]
